FAERS Safety Report 9092672 (Version 2)
Quarter: 2013Q2

REPORT INFORMATION
  Report Type: Spontaneous
  Country: US (occurrence: US)
  Receive Date: 20130201
  Receipt Date: 20130521
  Transmission Date: 20140414
  Serious: No
  Sender: FDA-Public Use
  Company Number: US-ASTRAZENECA-2013SE00722

PATIENT
  Age: 72 Year
  Sex: Female
  Weight: 54 kg

DRUGS (9)
  1. SYMBICORT PMDI [Suspect]
     Indication: ASTHMA
     Dosage: 160/4.5 MCG 2 BID
     Route: 055
     Dates: start: 2008
  2. NEXIUM [Suspect]
     Indication: REFLUX GASTRITIS
     Route: 048
     Dates: start: 2008, end: 2008
  3. REMERON [Suspect]
     Indication: WEIGHT DECREASED
     Route: 065
  4. REMERON [Suspect]
     Indication: IRRITABLE BOWEL SYNDROME
     Route: 065
  5. MEGESTROL [Suspect]
     Route: 065
  6. AMITIZA [Suspect]
     Route: 065
  7. VESICARE [Concomitant]
  8. SINGULAIR [Concomitant]
     Indication: HYPERSENSITIVITY
  9. ASPIRIN [Concomitant]
     Indication: SUBDURAL HAEMATOMA

REACTIONS (6)
  - Diarrhoea [Recovered/Resolved]
  - Weight decreased [Recovered/Resolved]
  - Arthralgia [Unknown]
  - Gait disturbance [Unknown]
  - Insomnia [Recovered/Resolved]
  - Intentional drug misuse [Unknown]
